FAERS Safety Report 5479966-7 (Version None)
Quarter: 2007Q4

REPORT INFORMATION
  Report Type: 
  Country: None (occurrence: None)
  Receive Date: 20071008
  Receipt Date: 20071002
  Transmission Date: 20080405
  Serious: Yes (Hospitalization)
  Sender: FDA-Public Use
  Company Number: AU-MERCK-0710AUS00012

PATIENT
  Age: 75 Year
  Sex: Male

DRUGS (17)
  1. FOSAMAX [Suspect]
     Route: 048
     Dates: start: 20061106
  2. CHOLECALCIFEROL [Concomitant]
     Route: 048
     Dates: start: 20061106
  3. SIMVASTATIN [Concomitant]
     Route: 048
  4. INSULIN [Concomitant]
     Route: 058
  5. CARVEDILOL [Concomitant]
     Route: 048
  6. MAGNESIUM (UNSPECIFIED) [Concomitant]
     Route: 048
     Dates: start: 20061106
  7. ACETAMINOPHEN [Concomitant]
     Route: 048
  8. DOCUSATE SODIUM AND SENNA [Concomitant]
     Route: 048
  9. CALCIUM (UNSPECIFIED) [Concomitant]
     Route: 048
     Dates: start: 20061106
  10. FUROSEMIDE [Concomitant]
     Route: 048
     Dates: end: 20061108
  11. GLICLAZIDE [Concomitant]
     Route: 048
     Dates: end: 20061108
  12. SPIRONOLACTONE [Concomitant]
     Route: 048
     Dates: end: 20061108
  13. ASPIRIN [Concomitant]
     Route: 048
     Dates: start: 20061106
  14. OXYCODONE HYDROCHLORIDE [Suspect]
     Route: 048
  15. OMEPRAZOLE [Suspect]
     Route: 048
     Dates: start: 20061106, end: 20061113
  16. HYDROCHLOROTHIAZIDE AND IRBESARTAN [Suspect]
     Route: 048
     Dates: end: 20061108
  17. FOLIC ACID [Suspect]
     Route: 048

REACTIONS (3)
  - BLOOD CREATININE INCREASED [None]
  - HYPERKALAEMIA [None]
  - RENAL IMPAIRMENT [None]
